FAERS Safety Report 8541256-3 (Version None)
Quarter: 2012Q3

REPORT INFORMATION
  Report Type: 
  Country: None (occurrence: None)
  Receive Date: 20120726
  Receipt Date: 20120724
  Transmission Date: 20120928
  Serious: No
  Sender: FDA-Public Use
  Company Number: US-BAYER-2012-074592

PATIENT

DRUGS (2)
  1. ADVIL [Suspect]
     Indication: TOOTHACHE
     Dosage: UNK
  2. ALEVE (CAPLET) [Suspect]
     Indication: TOOTHACHE
     Dosage: UNK

REACTIONS (1)
  - TOOTHACHE [None]
